FAERS Safety Report 10904334 (Version 1)
Quarter: 2015Q1

REPORT INFORMATION
  Report Type: Spontaneous
  Country: US (occurrence: None)
  Receive Date: 20150304
  Receipt Date: 20150304
  Transmission Date: 20150721
  Serious: Yes (Hospitalization)
  Sender: FDA-Public Use
  Company Number: None

PATIENT
  Sex: Male
  Weight: 70.9 kg

DRUGS (16)
  1. VIEKIRA PAK [Suspect]
     Active Substance: DASABUVIR\OMBITASVIR\PARITAPREVIR\RITONAVIR
     Indication: HEPATITIS C
     Dosage: VIEKIRA PAK 3 TABS, BID, PO?
     Route: 048
     Dates: start: 20150121
  2. LEVOCETIRIZINE (XYZAL) [Concomitant]
  3. LOSARTAN (COZAAR) [Concomitant]
  4. COPEGUS [Suspect]
     Active Substance: RIBAVIRIN
     Indication: HEPATITIS C
     Route: 048
     Dates: start: 20150121
  5. GLIPIZIDE (GLUOCOTROL XL) [Concomitant]
  6. OXYCODONE (ROXICODONE) [Concomitant]
  7. PANTOPRAZOLE (PROTONIX) [Concomitant]
  8. PREDNISONE (DEI/TASONE) [Concomitant]
  9. AMLODIPINE (NORVASC) [Concomitant]
  10. DIAZEPAM (VALIUM) [Concomitant]
  11. CALCIUM ACETATE (PHOSLO) [Concomitant]
  12. ERGOCALCIFEROL. [Concomitant]
     Active Substance: ERGOCALCIFEROL
  13. LABETALOL (NORMODYNE ) [Concomitant]
  14. TORSEMIDE (DENADEX) [Concomitant]
  15. PENTOXIFYLLINE (TRENTAL) [Concomitant]
  16. VIT B CMPLEX 3-FA-VIT C-BIOTIN (NEPHRO-VITE/RENA-VITE RX) [Concomitant]

REACTIONS (5)
  - Peripheral ischaemia [None]
  - Dry gangrene [None]
  - Extremity necrosis [None]
  - Diabetes mellitus [None]
  - Condition aggravated [None]

NARRATIVE: CASE EVENT DATE: 20150122
